FAERS Safety Report 7897332-1 (Version None)
Quarter: 2011Q4

REPORT INFORMATION
  Report Type: 
  Country: None (occurrence: None)
  Receive Date: 20111028
  Receipt Date: 20110323
  Transmission Date: 20120403
  Serious: Yes (Other)
  Sender: FDA-Public Use
  Company Number: PHHY2011US18062

PATIENT
  Sex: Male

DRUGS (5)
  1. SEROQUEL [Concomitant]
  2. LAMICTAL [Concomitant]
  3. TRILEPTAL [Suspect]
     Dosage: 600 MG, BID, ORAL
     Route: 048
  4. PARNATE [Concomitant]
  5. AMBIEN [Concomitant]

REACTIONS (1)
  - HYPONATRAEMIA [None]
